FAERS Safety Report 6229355-2 (Version None)
Quarter: 2009Q2

REPORT INFORMATION
  Report Type: 
  Country: None (occurrence: None)
  Receive Date: 20090615
  Receipt Date: 20090206
  Transmission Date: 20091009
  Serious: No
  Sender: FDA-Public Use
  Company Number: US-BRISTOL-MYERS SQUIBB COMPANY-14497549

PATIENT
  Sex: Female

DRUGS (3)
  1. MONOPRIL [Suspect]
  2. ACCUPRIL [Suspect]
  3. NORVASC [Suspect]

REACTIONS (3)
  - COUGH [None]
  - OEDEMA PERIPHERAL [None]
  - RASH [None]
